FAERS Safety Report 7138026-X (Version None)
Quarter: 2010Q4

REPORT INFORMATION
  Report Type: 
  Country: None (occurrence: None)
  Receive Date: 20101103
  Receipt Date: 20100913
  Transmission Date: 20110411
  Serious: Yes (Hospitalization)
  Sender: FDA-Public Use
  Company Number: US-WYE-H17493710

PATIENT
  Age: 74 Year
  Sex: Female
  Weight: 115.77 kg

DRUGS (15)
  1. EFFEXOR XR [Suspect]
     Indication: DEPRESSION
     Dosage: 37.5 MG 1X PER 1 DAY, ORAL; 75 MG 1X PER 1 DAY, ORAL
     Route: 048
     Dates: start: 20050101
  2. EFFEXOR XR [Suspect]
     Indication: DEPRESSION
     Dosage: 37.5 MG 1X PER 1 DAY, ORAL; 75 MG 1X PER 1 DAY, ORAL
     Route: 048
     Dates: start: 20100801
  3. NEURONTIN [Suspect]
     Indication: ANXIETY
     Dosage: 300 MG 2X PER 1 DAY, ORAL; TAPERED OFF TO 300 MG 3 X'S DAILY FOR 2 DAYS THEN 300 MG 1X1 DAY (AT NIGH
     Route: 048
     Dates: start: 20100801, end: 20100801
  4. NEURONTIN [Suspect]
     Indication: DEPRESSION
     Dosage: 300 MG 2X PER 1 DAY, ORAL; TAPERED OFF TO 300 MG 3 X'S DAILY FOR 2 DAYS THEN 300 MG 1X1 DAY (AT NIGH
     Route: 048
     Dates: start: 20100801, end: 20100801
  5. NEURONTIN [Suspect]
     Indication: ANXIETY
     Dosage: 300 MG 2X PER 1 DAY, ORAL; TAPERED OFF TO 300 MG 3 X'S DAILY FOR 2 DAYS THEN 300 MG 1X1 DAY (AT NIGH
     Route: 048
     Dates: start: 20100801, end: 20100801
  6. NEURONTIN [Suspect]
     Indication: DEPRESSION
     Dosage: 300 MG 2X PER 1 DAY, ORAL; TAPERED OFF TO 300 MG 3 X'S DAILY FOR 2 DAYS THEN 300 MG 1X1 DAY (AT NIGH
     Route: 048
     Dates: start: 20100801, end: 20100801
  7. NEURONTIN [Suspect]
     Indication: ANXIETY
     Dosage: 300 MG 2X PER 1 DAY, ORAL; TAPERED OFF TO 300 MG 3 X'S DAILY FOR 2 DAYS THEN 300 MG 1X1 DAY (AT NIGH
     Route: 048
     Dates: start: 20100901, end: 20100911
  8. NEURONTIN [Suspect]
     Indication: DEPRESSION
     Dosage: 300 MG 2X PER 1 DAY, ORAL; TAPERED OFF TO 300 MG 3 X'S DAILY FOR 2 DAYS THEN 300 MG 1X1 DAY (AT NIGH
     Route: 048
     Dates: start: 20100901, end: 20100911
  9. LOPRESSOR [Concomitant]
  10. KLONOPIN [Concomitant]
  11. GAIT DISTURBANCE (LLT: STUMBLING) [Concomitant]
  12. CONDITION AGGRAVATED (LLT: CONDITION AGGRAVATED) [Concomitant]
  13. ANXIETY (LLT: ANXIETY AGGRAVATED) [Concomitant]
  14. INSOMNIA (LLT: INSOMNIA) [Concomitant]
  15. TINNITUS (LLT: NOISES IN HEAD) [Concomitant]

REACTIONS (8)
  - ANXIETY [None]
  - CONDITION AGGRAVATED [None]
  - DEPRESSION [None]
  - DRUG WITHDRAWAL SYNDROME [None]
  - GAIT DISTURBANCE [None]
  - INCONTINENCE [None]
  - INSOMNIA [None]
  - TINNITUS [None]
